FAERS Safety Report 5809970-8 (Version None)
Quarter: 2008Q3

REPORT INFORMATION
  Report Type: 
  Country: None (occurrence: None)
  Receive Date: 20080715
  Receipt Date: 20080711
  Transmission Date: 20090109
  Serious: Yes (Hospitalization)
  Sender: FDA-Public Use
  Company Number: GB-TEVA-174186ISR

PATIENT
  Age: 73 Year
  Sex: Female
  Weight: 57.9 kg

DRUGS (1)
  1. CETIRIZINE HCL [Suspect]
     Route: 048
     Dates: end: 20080620

REACTIONS (1)
  - PLATELET COUNT INCREASED [None]
